FAERS Safety Report 14198796 (Version 1)
Quarter: 2017Q4

REPORT INFORMATION
  Report Type: Spontaneous
  Country: US (occurrence: None)
  Receive Date: 20171116
  Receipt Date: 20171116
  Transmission Date: 20180321
  Serious: Yes (Hospitalization)
  Sender: FDA-Public Use
  Company Number: None

PATIENT
  Age: 74 Year
  Sex: Female
  Weight: 65 kg

DRUGS (2)
  1. CARBOPLATIN. [Suspect]
     Active Substance: CARBOPLATIN
     Dates: end: 20170928
  2. GEMCITABINE HYDROCHLORIDE. [Suspect]
     Active Substance: GEMCITABINE HYDROCHLORIDE
     Dates: end: 20171005

REACTIONS (8)
  - Pleural effusion [None]
  - Asthenia [None]
  - Cough [None]
  - Therapy cessation [None]
  - Urinary tract infection [None]
  - Febrile neutropenia [None]
  - Infection [None]
  - Therapy change [None]

NARRATIVE: CASE EVENT DATE: 20171019
